FAERS Safety Report 16449505 (Version 1)
Quarter: 2019Q2

REPORT INFORMATION
  Report Type: Spontaneous
  Country: US (occurrence: US)
  Receive Date: 20190619
  Receipt Date: 20190619
  Transmission Date: 20190711
  Serious: No
  Sender: FDA-Public Use
  Company Number: US-ROCHE-2272445

PATIENT

DRUGS (7)
  1. ORENCIA [Concomitant]
     Active Substance: ABATACEPT
     Route: 065
     Dates: start: 200702, end: 200709
  2. HUMIRA [Concomitant]
     Active Substance: ADALIMUMAB
     Route: 065
     Dates: start: 200202, end: 200308
  3. ENBREL [Concomitant]
     Active Substance: ETANERCEPT
     Route: 065
     Dates: end: 2010
  4. REMICADE [Concomitant]
     Active Substance: INFLIXIMAB
     Route: 065
     Dates: start: 200710, end: 200810
  5. ACTEMRA [Suspect]
     Active Substance: TOCILIZUMAB
     Indication: RHEUMATOID ARTHRITIS
     Route: 065
  6. METHOTREXATE. [Concomitant]
     Active Substance: METHOTREXATE
  7. PLAQUENIL [Concomitant]
     Active Substance: HYDROXYCHLOROQUINE SULFATE

REACTIONS (2)
  - No adverse event [Unknown]
  - Treatment failure [Unknown]
